FAERS Safety Report 4429317-1 (Version None)
Quarter: 2004Q3

REPORT INFORMATION
  Report Type: 
  Country: None (occurrence: None)
  Receive Date: 20040818
  Receipt Date: 20040818
  Transmission Date: 20050211
  Serious: Yes (Life-Threatening, Hospitalization)
  Sender: FDA-Public Use
  Company Number: None

PATIENT
  Age: 64 Year
  Sex: Male
  Weight: 99 kg

DRUGS (8)
  1. INDOMETHACIN [Suspect]
     Indication: GOUT
     Dosage: 50 MG TID ORAL
     Route: 048
     Dates: start: 20040312, end: 20040328
  2. ASPIRIN [Suspect]
     Indication: CEREBROVASCULAR ACCIDENT
     Dosage: 81 MG QD ORAL
     Route: 048
     Dates: start: 19980202, end: 20040328
  3. CLOPIDOGREL [Concomitant]
  4. CARVEDILOL [Concomitant]
  5. SIMVASTATIN [Concomitant]
  6. CALCIUM ACETATE [Concomitant]
  7. NEPRHOLOGY VITAMIN [Concomitant]
  8. FELODIPINE [Concomitant]

REACTIONS (2)
  - GASTROINTESTINAL HAEMORRHAGE [None]
  - OESOPHAGITIS [None]
